FAERS Safety Report 5812576-8 (Version None)
Quarter: 2008Q3

REPORT INFORMATION
  Report Type: 
  Country: None (occurrence: None)
  Receive Date: 20080717
  Receipt Date: 20080714
  Transmission Date: 20090109
  Serious: Yes (Other)
  Sender: FDA-Public Use
  Company Number: US-ASTRAZENECA-2008UW14055

PATIENT
  Age: 32 Year
  Sex: Male
  Weight: 139.7 kg

DRUGS (2)
  1. SEROQUEL [Suspect]
     Indication: SLEEP DISORDER
     Route: 048
  2. TRAZODONE HCL [Concomitant]

REACTIONS (2)
  - PANIC ATTACK [None]
  - WEIGHT INCREASED [None]
